FAERS Safety Report 15480886 (Version 1)
Quarter: 2018Q4

REPORT INFORMATION
  Report Type: Spontaneous
  Country: FR (occurrence: FR)
  Receive Date: 20181010
  Receipt Date: 20181010
  Transmission Date: 20190205
  Serious: Yes (Hospitalization)
  Sender: FDA-Public Use
  Company Number: FR-ROCHE-2195637

PATIENT
  Age: 71 Year
  Sex: Male
  Weight: 84 kg

DRUGS (1)
  1. MABTHERA [Suspect]
     Active Substance: RITUXIMAB
     Indication: B-CELL LYMPHOMA STAGE III
     Route: 042
     Dates: start: 20180813, end: 20180813

REACTIONS (3)
  - Incorrect route of product administration [Unknown]
  - Incorrect drug administration rate [Unknown]
  - Cardiac telemetry [Recovered/Resolved]

NARRATIVE: CASE EVENT DATE: 20180813
